FAERS Safety Report 12270421 (Version 4)
Quarter: 2019Q4

REPORT INFORMATION
  Report Type: Report from Study
  Country: CA (occurrence: CA)
  Receive Date: 20160415
  Receipt Date: 20191016
  Transmission Date: 20200122
  Serious: Yes (Other)
  Sender: FDA-Public Use
  Company Number: CA-ROCHE-1125352

PATIENT
  Age: 48 Year
  Sex: Female
  Weight: 62 kg

DRUGS (29)
  1. ACTEMRA [Suspect]
     Active Substance: TOCILIZUMAB
     Dosage: (DOSE CONTD. AS 8MG/KG)
     Route: 042
     Dates: start: 20121015
  2. ACTEMRA [Suspect]
     Active Substance: TOCILIZUMAB
     Route: 042
     Dates: start: 20121112
  3. TRAMADOL. [Concomitant]
     Active Substance: TRAMADOL
  4. PANTOLOC [PANTOPRAZOLE] [Concomitant]
     Active Substance: PANTOPRAZOLE SODIUM
  5. ACTEMRA [Suspect]
     Active Substance: TOCILIZUMAB
     Route: 042
     Dates: start: 20121224
  6. ACTEMRA [Suspect]
     Active Substance: TOCILIZUMAB
     Dosage: DAY 1, 15
     Route: 042
     Dates: start: 20160512
  7. ACTEMRA [Suspect]
     Active Substance: TOCILIZUMAB
     Indication: RHEUMATOID ARTHRITIS
     Route: 058
     Dates: start: 20151006
  8. METHOTREXATE. [Suspect]
     Active Substance: METHOTREXATE
     Indication: PRODUCT USED FOR UNKNOWN INDICATION
     Route: 065
  9. DOCUSATE [Concomitant]
     Active Substance: DOCUSATE
     Dosage: 100
     Route: 065
  10. ACETAMINOPHEN. [Concomitant]
     Active Substance: ACETAMINOPHEN
     Route: 065
  11. ACTEMRA [Suspect]
     Active Substance: TOCILIZUMAB
     Route: 058
  12. BENADRYL [Suspect]
     Active Substance: DIPHENHYDRAMINE HYDROCHLORIDE
     Route: 042
     Dates: start: 20160512
  13. ALPRAZOLAM. [Concomitant]
     Active Substance: ALPRAZOLAM
     Route: 065
  14. NASONEX [Concomitant]
     Active Substance: MOMETASONE FUROATE
     Route: 045
  15. PREDNISONE. [Concomitant]
     Active Substance: PREDNISONE
  16. ACTEMRA [Suspect]
     Active Substance: TOCILIZUMAB
     Route: 042
     Dates: start: 20120918
  17. ACTEMRA [Suspect]
     Active Substance: TOCILIZUMAB
     Route: 042
     Dates: start: 20140930
  18. BENADRYL [Suspect]
     Active Substance: DIPHENHYDRAMINE HYDROCHLORIDE
     Indication: PREMEDICATION
     Route: 042
     Dates: start: 20120724
  19. NEURONTIN [Concomitant]
     Active Substance: GABAPENTIN
  20. ACTEMRA [Suspect]
     Active Substance: TOCILIZUMAB
     Indication: RHEUMATOID ARTHRITIS
     Route: 042
     Dates: start: 20120719
  21. BENADRYL [Suspect]
     Active Substance: DIPHENHYDRAMINE HYDROCHLORIDE
     Route: 042
     Dates: start: 20130108
  22. ACTEMRA [Suspect]
     Active Substance: TOCILIZUMAB
     Route: 042
     Dates: start: 20120802
  23. ACTEMRA [Suspect]
     Active Substance: TOCILIZUMAB
     Route: 042
     Dates: start: 20120724
  24. ACTEMRA [Suspect]
     Active Substance: TOCILIZUMAB
     Route: 042
  25. BENADRYL [Suspect]
     Active Substance: DIPHENHYDRAMINE HYDROCHLORIDE
     Route: 042
     Dates: start: 20130205
  26. FOLIC ACID. [Concomitant]
     Active Substance: FOLIC ACID
  27. HYDROMORPHONE [Concomitant]
     Active Substance: HYDROMORPHONE
     Route: 065
  28. NICORETTE [NICOTINE] [Concomitant]
     Route: 065
  29. TRAZODONE [Concomitant]
     Active Substance: TRAZODONE HYDROCHLORIDE
     Route: 065

REACTIONS (25)
  - Hepatic enzyme increased [Unknown]
  - Alopecia [Unknown]
  - Skin abrasion [Not Recovered/Not Resolved]
  - Fall [Unknown]
  - Oropharyngeal pain [Not Recovered/Not Resolved]
  - Hypotension [Unknown]
  - Pain [Unknown]
  - Urticaria [Recovered/Resolved]
  - Bronchitis [Recovered/Resolved]
  - Therapy partial responder [Unknown]
  - Therapeutic response decreased [Not Recovered/Not Resolved]
  - Drug ineffective [Unknown]
  - Pruritus [Recovered/Resolved]
  - Nasopharyngitis [Not Recovered/Not Resolved]
  - Infusion related reaction [Unknown]
  - Breast pain [Not Recovered/Not Resolved]
  - Disorientation [Not Recovered/Not Resolved]
  - Somnolence [Not Recovered/Not Resolved]
  - Skin laceration [Not Recovered/Not Resolved]
  - Erythema [Unknown]
  - Hypersensitivity [Not Recovered/Not Resolved]
  - Oral discomfort [Recovered/Resolved]
  - Cough [Not Recovered/Not Resolved]
  - Arthralgia [Not Recovered/Not Resolved]
  - Wound [Unknown]

NARRATIVE: CASE EVENT DATE: 20120719
